FAERS Safety Report 5794070-6 (Version None)
Quarter: 2008Q2

REPORT INFORMATION
  Report Type: 
  Country: None (occurrence: None)
  Receive Date: 20080627
  Receipt Date: 20080624
  Transmission Date: 20081010
  Serious: Yes (Death, Other)
  Sender: FDA-Public Use
  Company Number: MX-ABBOTT-08P-107-0455563-00

PATIENT
  Sex: Male

DRUGS (9)
  1. KALETRA [Suspect]
     Indication: DRUG USE FOR UNKNOWN INDICATION
     Dates: start: 20060523
  2. DEXAMETHASONE [Concomitant]
     Route: 042
  3. CEFEPIME [Concomitant]
  4. ALBUTEROL [Concomitant]
     Route: 048
  5. FILGASTRIN [Concomitant]
     Route: 058
  6. TRIMETHOPRIM [Concomitant]
     Route: 042
  7. FOLIC ACID [Concomitant]
  8. OMEPRAZOLE SODIUM [Concomitant]
     Route: 042
  9. RANITIDINE HCL [Concomitant]

REACTIONS (3)
  - GASTROINTESTINAL HAEMORRHAGE [None]
  - HYPOVOLAEMIC SHOCK [None]
  - NON-HODGKIN'S LYMPHOMA [None]
